FAERS Safety Report 12861256 (Version 1)
Quarter: 2016Q4

REPORT INFORMATION
  Report Type: Spontaneous
  Country: TW (occurrence: TW)
  Receive Date: 20161019
  Receipt Date: 20161019
  Transmission Date: 20170207
  Serious: Yes (Other)
  Sender: FDA-Public Use
  Company Number: TW-AMGEN-TWNSP2015076248

PATIENT
  Age: 57 Year
  Sex: Female

DRUGS (3)
  1. MTX [Concomitant]
     Active Substance: METHOTREXATE SODIUM
     Dosage: 6 DF, QW
     Route: 048
  2. ENBREL [Suspect]
     Active Substance: ETANERCEPT
     Indication: RHEUMATOID ARTHRITIS
     Dosage: 50 MG, QW
     Route: 058
     Dates: start: 201607
  3. MTX [Concomitant]
     Active Substance: METHOTREXATE SODIUM
     Indication: RHEUMATOID ARTHRITIS
     Dosage: 3 DF, WEEKLY
     Route: 048

REACTIONS (23)
  - Pain in jaw [Unknown]
  - Red blood cells urine positive [Unknown]
  - Urinary sediment present [Unknown]
  - Blood urine present [Not Recovered/Not Resolved]
  - Cough [Unknown]
  - Joint swelling [Unknown]
  - Fatigue [Unknown]
  - Bacterial test positive [Unknown]
  - Poor quality sleep [Unknown]
  - Neck pain [Unknown]
  - Musculoskeletal stiffness [Unknown]
  - Dry mouth [Unknown]
  - Arthralgia [Unknown]
  - Proteinuria [Unknown]
  - Cataract [Unknown]
  - White blood cells urine positive [Not Recovered/Not Resolved]
  - Urine leukocyte esterase positive [Not Recovered/Not Resolved]
  - Red blood cell sedimentation rate increased [Not Recovered/Not Resolved]
  - Nasal congestion [Unknown]
  - Nasopharyngitis [Unknown]
  - C-reactive protein increased [Unknown]
  - Rhinorrhoea [Unknown]
  - Hypoaesthesia [Unknown]

NARRATIVE: CASE EVENT DATE: 2015
